FAERS Safety Report 10203928 (Version 2)
Quarter: 2014Q2

REPORT INFORMATION
  Report Type: Spontaneous
  Country: DK (occurrence: DK)
  Receive Date: 20140529
  Receipt Date: 20140611
  Transmission Date: 20141212
  Serious: Yes (Life-Threatening, Hospitalization, Other)
  Sender: FDA-Public Use
  Company Number: PHHY2014DK060927

PATIENT
  Age: 66 Year
  Sex: Male

DRUGS (3)
  1. METHYLPREDNISOLONE [Suspect]
     Indication: INFLAMMATORY BOWEL DISEASE
     Dosage: 40 MG, BID
     Route: 042
  2. PREDNISOLONE [Suspect]
     Indication: INFLAMMATORY BOWEL DISEASE
     Dosage: 60 MG, QD
  3. METHOTREXATE [Suspect]
     Indication: PSORIATIC ARTHROPATHY
     Dosage: 15 MG, WEEKLY

REACTIONS (13)
  - Necrotising colitis [Recovered/Resolved]
  - Abdominal pain lower [Recovered/Resolved]
  - Diarrhoea [Recovered/Resolved]
  - Weight decreased [Unknown]
  - Colitis [Recovered/Resolved]
  - Abdominal tenderness [Recovered/Resolved]
  - Diarrhoea haemorrhagic [Recovered/Resolved]
  - Dysentery [Recovered/Resolved]
  - Amoebic colitis [Recovered/Resolved]
  - Amoebiasis [Recovering/Resolving]
  - Dehydration [Unknown]
  - Disease progression [Unknown]
  - Drug ineffective [Unknown]
